FAERS Safety Report 4755975-8 (Version None)
Quarter: 2005Q3

REPORT INFORMATION
  Report Type: 
  Country: None (occurrence: None)
  Receive Date: 20050825
  Receipt Date: 20050617
  Transmission Date: 20060218
  Serious: Yes (Disabling)
  Sender: FDA-Public Use
  Company Number: WAES 0506USA02903

PATIENT
  Sex: Male

DRUGS (5)
  1. VYTORIN [Suspect]
     Dosage: 10-20 MG/PO
     Route: 048
  2. GLUCOPHAGE [Concomitant]
  3. IMDUR [Concomitant]
  4. PROCARDIA [Concomitant]
  5. ATENOLOL [Concomitant]

REACTIONS (6)
  - ALANINE AMINOTRANSFERASE INCREASED [None]
  - ASPARTATE AMINOTRANSFERASE INCREASED [None]
  - ASTHENIA [None]
  - BLOOD CREATINE PHOSPHOKINASE INCREASED [None]
  - FATIGUE [None]
  - MYALGIA [None]
